FAERS Safety Report 6985716-5 (Version None)
Quarter: 2010Q3

REPORT INFORMATION
  Report Type: 
  Country: None (occurrence: None)
  Receive Date: 20100915
  Receipt Date: 20100908
  Transmission Date: 20110219
  Serious: Yes (Other)
  Sender: FDA-Public Use
  Company Number: BR-ABBOTT-10P-020-0669282-00

PATIENT
  Sex: Female
  Weight: 68 kg

DRUGS (1)
  1. HUMIRA [Suspect]
     Indication: ANKYLOSING SPONDYLITIS
     Route: 058
     Dates: start: 20091001

REACTIONS (5)
  - BLOOD CHOLESTEROL ABNORMAL [None]
  - FATIGUE [None]
  - SINUSITIS [None]
  - URINARY TRACT INFECTION [None]
  - VARICOSE VEIN [None]
